FAERS Safety Report 7728314-8 (Version None)
Quarter: 2011Q3

REPORT INFORMATION
  Report Type: 
  Country: None (occurrence: None)
  Receive Date: 20110905
  Receipt Date: 20110831
  Transmission Date: 20111222
  Serious: Yes (Hospitalization)
  Sender: FDA-Public Use
  Company Number: PHEH2011US01356

PATIENT
  Sex: Female

DRUGS (1)
  1. FEMARA [Suspect]
     Indication: OVARIAN CANCER
     Dosage: 2.5 MG, QD
     Route: 048

REACTIONS (2)
  - INTESTINAL PERFORATION [None]
  - HERNIA [None]
